FAERS Safety Report 18228013 (Version 1)
Quarter: 2020Q3

REPORT INFORMATION
  Report Type: Spontaneous
  Country: US (occurrence: US)
  Receive Date: 20200903
  Receipt Date: 20200903
  Transmission Date: 20201103
  Serious: Yes (Other)
  Sender: FDA-Public Use
  Company Number: None

PATIENT
  Age: 86 Year
  Sex: Male
  Weight: 70 kg

DRUGS (2)
  1. REMDESIVIR. [Suspect]
     Active Substance: REMDESIVIR
     Indication: COVID-19
     Dosage: ?          OTHER FREQUENCY:ONCE;?
     Route: 040
     Dates: start: 20200826, end: 20200826
  2. REMDESIVIR. [Suspect]
     Active Substance: REMDESIVIR
     Indication: RESPIRATORY FAILURE
     Dosage: ?          OTHER FREQUENCY:ONCE;?
     Route: 040
     Dates: start: 20200826, end: 20200826

REACTIONS (3)
  - Blood bilirubin increased [None]
  - Respiratory failure [None]
  - Alanine aminotransferase increased [None]

NARRATIVE: CASE EVENT DATE: 20200827
